FAERS Safety Report 23743690 (Version 1)
Quarter: 2024Q2

REPORT INFORMATION
  Report Type: Spontaneous
  Country: US (occurrence: US)
  Receive Date: 20240415
  Receipt Date: 20240415
  Transmission Date: 20240716
  Serious: Yes (Other)
  Sender: FDA-Public Use
  Company Number: US-DRL-USA-LIT/USA/24/0005685

PATIENT
  Age: 65 Year
  Sex: Male

DRUGS (7)
  1. TACROLIMUS [Suspect]
     Active Substance: TACROLIMUS
     Indication: Immunosuppression
  2. POSACONAZOLE [Suspect]
     Active Substance: POSACONAZOLE
     Indication: Prophylaxis
  3. MYCOPHENOLATE MOFETIL [Suspect]
     Active Substance: MYCOPHENOLATE MOFETIL
     Indication: Immunosuppression
  4. PREDNISONE [Suspect]
     Active Substance: PREDNISONE
     Indication: Immunosuppression
  5. SULFAMETHOXAZOLE\TRIMETHOPRIM [Concomitant]
     Active Substance: SULFAMETHOXAZOLE\TRIMETHOPRIM
     Indication: Prophylaxis
  6. AZITHROMYCIN [Concomitant]
     Active Substance: AZITHROMYCIN
     Indication: Prophylaxis
  7. VALGANCICLOVIR [Concomitant]
     Active Substance: VALGANCICLOVIR
     Indication: Prophylaxis

REACTIONS (3)
  - Drug ineffective [Unknown]
  - Drug ineffective [Unknown]
  - Organising pneumonia [Unknown]
